FAERS Safety Report 17237582 (Version 6)
Quarter: 2022Q1

REPORT INFORMATION
  Report Type: Report from Study
  Country: US (occurrence: US)
  Receive Date: 20200106
  Receipt Date: 20220209
  Transmission Date: 20220423
  Serious: Yes (Other)
  Sender: FDA-Public Use
  Company Number: None

PATIENT
  Sex: Female

DRUGS (3)
  1. COSENTYX [Suspect]
     Active Substance: SECUKINUMAB
     Indication: Psoriasis
     Dosage: 300 MG QW (WEEKS 0, 1, 2, 3, AND 4. THEN ONCE EVERY 4 WEEKS THEREAFTER)
     Route: 058
     Dates: start: 20191015
  2. COSENTYX [Suspect]
     Active Substance: SECUKINUMAB
     Indication: Psoriatic arthropathy
     Dosage: 300 MG, QMO
     Route: 058
  3. COSENTYX [Suspect]
     Active Substance: SECUKINUMAB
     Dosage: 300 MG, QMO (2 PENS ONCE EVERY FOUR WEEKS)
     Route: 058

REACTIONS (7)
  - Psoriatic arthropathy [Unknown]
  - Arthralgia [Unknown]
  - Back pain [Unknown]
  - Psoriasis [Unknown]
  - Pain [Unknown]
  - Drug ineffective [Unknown]
  - Therapeutic response shortened [Unknown]
